FAERS Safety Report 5298174-6 (Version None)
Quarter: 2007Q2

REPORT INFORMATION
  Report Type: 
  Country: None (occurrence: None)
  Receive Date: 20070416
  Receipt Date: 20070410
  Transmission Date: 20071010
  Serious: Yes (Death, Other)
  Sender: FDA-Public Use
  Company Number: JP-SHR-JP-2007-002046

PATIENT
  Age: 54 Year
  Sex: Female

DRUGS (11)
  1. FLUDARA [Suspect]
     Indication: CHRONIC LYMPHOCYTIC LEUKAEMIA
     Dosage: 30 MG, CYCLE X 5D
     Route: 042
     Dates: start: 20060111, end: 20060115
  2. FLUDARA [Suspect]
     Dosage: 30 MG, CYCLE X 5D
     Route: 042
     Dates: start: 20060208, end: 20060212
  3. FLUDARA [Suspect]
     Dosage: 30 MG, CYCLE X 5D
     Route: 042
     Dates: start: 20060313, end: 20060317
  4. FLUDARA [Suspect]
     Dosage: 30 MG, CYCLE X 5D
     Route: 042
     Dates: start: 20060410, end: 20060414
  5. FLUDARA [Suspect]
     Dosage: 30 MG, CYCLE X 5D
     Route: 042
     Dates: start: 20060508, end: 20060512
  6. RITUXAN [Suspect]
     Indication: CHRONIC LYMPHOCYTIC LEUKAEMIA
     Dosage: 525 MG, 1X/DAY
     Route: 041
     Dates: start: 20060208, end: 20060208
  7. RITUXAN [Suspect]
     Dosage: 525 MG, 1X/DAY
     Route: 041
     Dates: start: 20060313, end: 20060313
  8. RITUXAN [Suspect]
     Dosage: 525 MG, 1X/DAY
     Route: 041
     Dates: start: 20060410, end: 20060410
  9. RITUXAN [Suspect]
     Dosage: 525 MG, 1X/DAY
     Dates: start: 20060508, end: 20060508
  10. RITUXAN [Suspect]
     Dosage: 525 MG, 1X/DAY
     Route: 041
     Dates: start: 20060607, end: 20060607
  11. DIFLUCAN [Concomitant]
     Indication: ANTIFUNGAL PROPHYLAXIS
     Dosage: 100 MG, 1X/DAY
     Route: 048
     Dates: start: 20060111, end: 20060512

REACTIONS (5)
  - DYSPNOEA [None]
  - OBLITERATIVE BRONCHIOLITIS [None]
  - PNEUMONIA [None]
  - PO2 DECREASED [None]
  - RESPIRATORY FAILURE [None]
